FAERS Safety Report 13929662 (Version 1)
Quarter: 2017Q3

REPORT INFORMATION
  Report Type: Spontaneous
  Country: JP (occurrence: JP)
  Receive Date: 20170901
  Receipt Date: 20170901
  Transmission Date: 20171127
  Serious: Yes (Other)
  Sender: FDA-Public Use
  Company Number: PHJP1997JP001301

PATIENT
  Age: 28 Year
  Sex: Female

DRUGS (1)
  1. RIMACTANE [Suspect]
     Active Substance: RIFAMPIN
     Indication: PRODUCT USED FOR UNKNOWN INDICATION
     Dosage: UNK
     Route: 065

REACTIONS (4)
  - Haemolytic uraemic syndrome [Unknown]
  - Multiple organ dysfunction syndrome [Unknown]
  - Nephritis [Unknown]
  - Anaphylactic reaction [Unknown]
